FAERS Safety Report 8495397-X (Version None)
Quarter: 2012Q2

REPORT INFORMATION
  Report Type: 
  Country: None (occurrence: None)
  Receive Date: 20120403
  Receipt Date: 20110830
  Transmission Date: 20120825
  Serious: Yes (Other)
  Sender: FDA-Public Use
  Company Number: 3-0811-86

PATIENT
  Sex: Male

DRUGS (3)
  1. CASSAR [Concomitant]
  2. DERMOTIC [Suspect]
     Indication: CERUMEN IMPACTION
     Dosage: TOPICAL
     Route: 061
  3. PAXIL [Concomitant]

REACTIONS (1)
  - TINNITUS [None]
